FAERS Safety Report 6448786-9 (Version None)
Quarter: 2009Q4

REPORT INFORMATION
  Report Type: 
  Country: None (occurrence: None)
  Receive Date: 20091120
  Receipt Date: 20091109
  Transmission Date: 20100525
  Serious: Yes (Other)
  Sender: FDA-Public Use
  Company Number: PHHY2009DE49677

PATIENT
  Age: 77 Year
  Sex: Female

DRUGS (6)
  1. ACLASTA [Suspect]
     Indication: OSTEOPOROSIS
     Dosage: 5 MG/YEAR
     Route: 042
     Dates: start: 20091105
  2. LEVOTHYROXINE SODIUM [Concomitant]
     Indication: POST PROCEDURAL HYPOTHYROIDISM
     Route: 048
  3. BISOPROLOL [Concomitant]
     Indication: HYPERTENSION
  4. INSULIN [Concomitant]
     Indication: TYPE 1 DIABETES MELLITUS
     Dosage: REGULAR SINGLE DOSES 20 IU
     Route: 058
  5. INSULIN [Concomitant]
     Dosage: REGULAR SINGLE DOSES 10 IU
     Route: 058
  6. INSULIN [Concomitant]
     Dosage: REGULAR SINGLE DOSES 20 IU
     Route: 058

REACTIONS (8)
  - ARTHRALGIA [None]
  - ASTHENIA [None]
  - BLOOD GLUCOSE INCREASED [None]
  - CHILLS [None]
  - HYPOPHAGIA [None]
  - INFLUENZA LIKE ILLNESS [None]
  - MYALGIA [None]
  - NAUSEA [None]
